FAERS Safety Report 16806037 (Version 3)
Quarter: 2019Q3

REPORT INFORMATION
  Report Type: Report from Study
  Country: US (occurrence: US)
  Receive Date: 20190913
  Receipt Date: 20190930
  Transmission Date: 20191005
  Serious: Yes (Hospitalization, Other)
  Sender: FDA-Public Use
  Company Number: US-GILEAD-2019-0427773

PATIENT
  Age: 59 Year
  Sex: Male

DRUGS (3)
  1. NEULASTA [Concomitant]
     Active Substance: PEGFILGRASTIM
     Dosage: 1-2 TIMES IN THE ^FIRST PART 2018^.
     Dates: start: 201801
  2. AXICABTAGENE CILOLEUCEL [Suspect]
     Active Substance: AXICABTAGENE CILOLEUCEL
     Indication: B-CELL LYMPHOMA
  3. AXICABTAGENE CILOLEUCEL [Suspect]
     Active Substance: AXICABTAGENE CILOLEUCEL
     Indication: DIFFUSE LARGE B-CELL LYMPHOMA
     Dosage: UNK
     Route: 042
     Dates: start: 20180327, end: 20180327

REACTIONS (13)
  - Platelet count decreased [Unknown]
  - Impaired healing [Unknown]
  - Precancerous skin lesion [Unknown]
  - Blood immunoglobulin G decreased [Unknown]
  - Pyrexia [Recovered/Resolved]
  - Benign neoplasm [Unknown]
  - Decreased appetite [Recovering/Resolving]
  - Weight decreased [Unknown]
  - Fatigue [Not Recovered/Not Resolved]
  - Anaemia [Recovered/Resolved]
  - Squamous cell carcinoma [Unknown]
  - Malignant fibrous histiocytoma [Unknown]
  - Atypical fibroxanthoma [Unknown]

NARRATIVE: CASE EVENT DATE: 20180329
